FAERS Safety Report 9181882 (Version 1)
Quarter: 2013Q1

REPORT INFORMATION
  Report Type: Spontaneous
  Country: US (occurrence: US)
  Receive Date: 20130322
  Receipt Date: 20130322
  Transmission Date: 20140127
  Serious: Yes (Other)
  Sender: FDA-Public Use
  Company Number: US-PFIZER INC-2013091110

PATIENT
  Age: 46 Year
  Sex: Female
  Weight: 102.95 kg

DRUGS (2)
  1. CALAN SR [Suspect]
     Indication: HYPERTENSION
     Dosage: UNK
     Route: 048
     Dates: start: 2001, end: 201301
  2. RELPAX [Suspect]
     Indication: MIGRAINE
     Dosage: UNK
     Dates: start: 2001, end: 201301

REACTIONS (2)
  - Ankle fracture [Unknown]
  - Nasopharyngitis [Unknown]
